FAERS Safety Report 6141855-2 (Version None)
Quarter: 2009Q2

REPORT INFORMATION
  Report Type: 
  Country: None (occurrence: None)
  Receive Date: 20090401
  Receipt Date: 20090401
  Transmission Date: 20091009
  Serious: Yes (Other)
  Sender: FDA-Public Use
  Company Number: None

PATIENT
  Age: 29 Year
  Sex: Female
  Weight: 56.6996 kg

DRUGS (1)
  1. LODINE [Suspect]
     Indication: BACK PAIN
     Dosage: 1 PILL 3 TIMES A DAY PO
     Route: 048
     Dates: start: 20090226, end: 20090226

REACTIONS (3)
  - DIZZINESS [None]
  - DYSPNOEA [None]
  - SOMNOLENCE [None]
